FAERS Safety Report 11957397 (Version 1)
Quarter: 2016Q1

REPORT INFORMATION
  Report Type: Report from Study
  Country: US (occurrence: US)
  Receive Date: 20160126
  Receipt Date: 20160126
  Transmission Date: 20160526
  Serious: No
  Sender: FDA-Public Use
  Company Number: US-ABBVIE-15K-163-1347020-00

PATIENT
  Age: 23 Year
  Sex: Female
  Weight: 136.2 kg

DRUGS (1)
  1. HUMIRA [Suspect]
     Active Substance: ADALIMUMAB
     Indication: PSORIASIS
     Route: 065
     Dates: start: 2010, end: 2014

REACTIONS (1)
  - Skin ulcer [Not Recovered/Not Resolved]
